FAERS Safety Report 9254817 (Version 2)
Quarter: 2013Q2

REPORT INFORMATION
  Report Type: Report from Study
  Country: BR (occurrence: BR)
  Receive Date: 20130425
  Receipt Date: 20130612
  Transmission Date: 20140414
  Serious: Yes (Hospitalization, Other)
  Sender: FDA-Public Use
  Company Number: BR-ABBOTT-13P-020-1078723-00

PATIENT
  Sex: Female
  Weight: 77 kg

DRUGS (15)
  1. HUMIRA [Suspect]
     Indication: RHEUMATOID ARTHRITIS
     Route: 058
     Dates: start: 2008
  2. ZOLPIDEM HEMITARTRATE [Concomitant]
     Indication: INSOMNIA
     Route: 048
     Dates: start: 201303
  3. PREDNISONE [Concomitant]
     Indication: PRODUCT USED FOR UNKNOWN INDICATION
     Route: 048
     Dates: start: 2008
  4. OMEPRAZOLE [Concomitant]
     Indication: GASTRIC DISORDER
     Route: 048
     Dates: start: 2009
  5. DEPURA [Concomitant]
     Indication: PRODUCT USED FOR UNKNOWN INDICATION
     Route: 048
  6. FOLIC ACID [Concomitant]
     Indication: PRODUCT USED FOR UNKNOWN INDICATION
     Route: 048
  7. SIMVASTATIN [Concomitant]
     Indication: BLOOD CHOLESTEROL ABNORMAL
     Route: 048
  8. LOSARTAN [Concomitant]
     Indication: BLOOD PRESSURE
     Route: 048
     Dates: start: 2010
  9. METHOTREXATE [Concomitant]
     Indication: ARTHRITIS
     Route: 048
     Dates: start: 2008
  10. BUPROPION [Concomitant]
     Indication: DEPRESSION
     Dates: start: 2012
  11. VENLAFAXINE HYDROCHLORIDE [Concomitant]
     Indication: DEPRESSION
     Route: 048
     Dates: start: 2012
  12. HYDROCHLOROTHIAZIDE [Concomitant]
     Indication: GENERALISED OEDEMA
  13. HYDROCHLOROTHIAZIDE [Concomitant]
     Indication: MYOCARDIAL OEDEMA
  14. HYDROCHLOROTHIAZIDE [Concomitant]
     Indication: PROPHYLAXIS
  15. HYDROCHLOROTHIAZIDE [Concomitant]
     Indication: PROPHYLAXIS

REACTIONS (6)
  - Gallbladder disorder [Unknown]
  - Depression [Unknown]
  - Pulmonary mass [Recovered/Resolved]
  - Infection [Not Recovered/Not Resolved]
  - Lung infection [Recovered/Resolved]
  - Loose tooth [Not Recovered/Not Resolved]
